FAERS Safety Report 14228890 (Version 1)
Quarter: 2017Q4

REPORT INFORMATION
  Report Type: Spontaneous
  Country: US (occurrence: None)
  Receive Date: 20171124
  Receipt Date: 20171124
  Transmission Date: 20180321
  Serious: No
  Sender: FDA-Public Use
  Company Number: None

PATIENT
  Age: 76 Year
  Sex: Female

DRUGS (1)
  1. IBRANCE [Suspect]
     Active Substance: PALBOCICLIB
     Indication: ILL-DEFINED DISORDER
     Dosage: 1 CAPSULE DAILY FOR 21 DAYS OUT OF 28 DAY CYCLE ORAL
     Route: 048
     Dates: start: 20170629

REACTIONS (1)
  - Aphasia [None]

NARRATIVE: CASE EVENT DATE: 20171001
